FAERS Safety Report 13640774 (Version 1)
Quarter: 2017Q2

REPORT INFORMATION
  Report Type: Report from Study
  Country: US (occurrence: US)
  Receive Date: 20170612
  Receipt Date: 20170612
  Transmission Date: 20170830
  Serious: No
  Sender: FDA-Public Use
  Company Number: PHEH2017US017662

PATIENT

DRUGS (1)
  1. ILARIS [Suspect]
     Active Substance: CANAKINUMAB
     Dosage: 130 MG, EVERY 4 WEEKS
     Route: 058

REACTIONS (2)
  - Musculoskeletal stiffness [Unknown]
  - Pain [Unknown]
